FAERS Safety Report 5921072-9 (Version None)
Quarter: 2008Q4

REPORT INFORMATION
  Report Type: 
  Country: None (occurrence: None)
  Receive Date: 20081016
  Receipt Date: 20081006
  Transmission Date: 20090506
  Serious: Yes (Other)
  Sender: FDA-Public Use
  Company Number: US-PFIZER INC-2008084433

PATIENT
  Sex: Female
  Weight: 63.5 kg

DRUGS (13)
  1. LIPITOR [Suspect]
     Indication: BLOOD CHOLESTEROL INCREASED
     Dosage: FREQ:DAILY
     Dates: end: 20070101
  2. NORVASC [Concomitant]
     Dosage: FREQ:AT BREAKFAST
  3. VITAMIN E [Concomitant]
     Dosage: FREQ:AT BREAKFAST
  4. NIACIN [Concomitant]
     Dosage: FREQ:AT BREAKFAST
  5. IRON [Concomitant]
     Dosage: FREQ:AT BREAKFAST
  6. ASCORBIC ACID [Concomitant]
     Dosage: FREQ:AT BREAKFAST AND IN THE EVENING
  7. LISINOPRIL [Concomitant]
     Dosage: FREQ:AT BREAKFAST AND IN THE EVENING
  8. CALCIUM [Concomitant]
     Dosage: FREQ:AT BREAKFAST
  9. FISH OIL [Concomitant]
     Dosage: FREQ:AT NOON
  10. ZINC [Concomitant]
     Dosage: FREQ:AT NOON
  11. MULTI-VITAMINS [Concomitant]
     Dosage: FREQ:AT NOON
  12. TOPROL-XL [Concomitant]
     Dosage: FREQ:IN THE EVENING
  13. ACETYLSALICYLIC ACID SRT [Concomitant]
     Dosage: FREQ:IN THE EVENING

REACTIONS (3)
  - ECCHYMOSIS [None]
  - MUSCLE INJURY [None]
  - MUSCLE STRAIN [None]
